FAERS Safety Report 8480827-X (Version None)
Quarter: 2012Q2

REPORT INFORMATION
  Report Type: 
  Country: None (occurrence: None)
  Receive Date: 20120622
  Receipt Date: 20120613
  Transmission Date: 20120825
  Serious: Yes (Hospitalization)
  Sender: FDA-Public Use
  Company Number: 2012HGS-003739

PATIENT
  Age: 57 Year
  Sex: Female
  Weight: 51.7101 kg

DRUGS (13)
  1. BENLYSTA [Suspect]
     Indication: SYSTEMIC LUPUS ERYTHEMATOSUS
     Dosage: 1 IN 28 D, INTRAVENOUS DRIP
     Route: 041
     Dates: start: 20120420
  2. PRAVACHOL [Concomitant]
  3. ATENOLOL [Concomitant]
  4. AMBIEN [Concomitant]
  5. FUROSEMIDE [Concomitant]
  6. COUMADIN [Concomitant]
  7. VICODIN (VICODIN) (PARACETAMOL, HDYROCODONE BITARTRATE) [Concomitant]
  8. PREDNISONE [Concomitant]
  9. LISINOPRIL [Concomitant]
  10. MAGNESIUM (MAGNESIUM) (MAGNESIUM) [Concomitant]
  11. COLCRYS (COLCHICINE) (COLCHICINE) [Concomitant]
  12. MULTIVITAMIN (THERAGRAN/02160401/) [Concomitant]
  13. CALCIUM (CALCIUM) (CALCIUM) [Concomitant]

REACTIONS (3)
  - DIVERTICULITIS [None]
  - PYREXIA [None]
  - THERAPEUTIC RESPONSE UNEXPECTED [None]
